FAERS Safety Report 9167945 (Version 2)
Quarter: 2013Q1

REPORT INFORMATION
  Report Type: Spontaneous
  Country: US (occurrence: US)
  Receive Date: 20130318
  Receipt Date: 20130328
  Transmission Date: 20140127
  Serious: Yes (Hospitalization)
  Sender: FDA-Public Use
  Company Number: US-SANOFI-AVENTIS-2013SA026335

PATIENT
  Age: 71 Year
  Sex: Male
  Weight: 105 kg

DRUGS (6)
  1. ELITEK [Suspect]
     Indication: TUMOUR LYSIS SYNDROME
     Dosage: TEST DOSE
     Route: 042
     Dates: start: 20130306, end: 20130306
  2. ELITEK [Suspect]
     Indication: TUMOUR LYSIS SYNDROME
     Dosage: TEST DOSE
     Route: 042
     Dates: start: 20130306, end: 20130306
  3. ENOXAPARIN [Concomitant]
     Indication: PROPHYLAXIS
     Dates: start: 20130305, end: 20130307
  4. ALPHA HYDROXY ACIDS/UREA [Concomitant]
     Indication: CHRONIC LYMPHOCYTIC LEUKAEMIA
  5. PANTOPRAZOLE [Concomitant]
     Indication: GASTROOESOPHAGEAL REFLUX DISEASE
  6. ASPIRIN [Concomitant]

REACTIONS (1)
  - Respiratory distress [Recovered/Resolved]
